FAERS Safety Report 11656129 (Version 1)
Quarter: 2015Q4

REPORT INFORMATION
  Report Type: Report from Study
  Country: JP (occurrence: JP)
  Receive Date: 20151023
  Receipt Date: 20151023
  Transmission Date: 20160304
  Serious: Yes (Hospitalization, Other)
  Sender: FDA-Public Use
  Company Number: JP-WARNER CHILCOTT 2015-000057

PATIENT
  Age: 82 Year
  Sex: Female

DRUGS (19)
  1. ANTEBATE [Concomitant]
     Active Substance: BETAMETHASONE DIPROPIONATE
     Dates: start: 20141027, end: 20150426
  2. GLACTIV [Concomitant]
     Active Substance: SITAGLIPTIN
     Dates: start: 20150427, end: 20150504
  3. AMLODIPINE [Concomitant]
     Active Substance: AMLODIPINE BESYLATE
     Dates: start: 20141025, end: 20150504
  4. CALCIUM LACTATE [Concomitant]
     Active Substance: CALCIUM LACTATE
     Dates: start: 20140813, end: 20150504
  5. MAGNESIUM OXIDE. [Concomitant]
     Active Substance: MAGNESIUM OXIDE
     Dates: start: 20141201, end: 20150504
  6. ADOAIR [Concomitant]
     Active Substance: FLUTICASONE PROPIONATE\SALMETEROL XINAFOATE
     Dates: start: 201211, end: 20150504
  7. KARY UNI [Concomitant]
     Active Substance: PIRENOXINE
     Dates: start: 20130111
  8. HYALEIN [Concomitant]
     Active Substance: HYALURONATE SODIUM
     Dates: start: 20120714
  9. MUCODYNE [Concomitant]
     Active Substance: CARBOCYSTEINE
     Dates: start: 201211, end: 20150207
  10. GASTER [Concomitant]
     Active Substance: FAMOTIDINE
  11. HIRUDOID [Concomitant]
     Active Substance: GLYCOSAMINOGLYCANS
     Dates: start: 20141027, end: 20150426
  12. ACTONEL [Suspect]
     Active Substance: RISEDRONATE SODIUM
     Indication: OSTEOPOROSIS
     Route: 048
     Dates: start: 20140925, end: 20150504
  13. LIPITOR [Concomitant]
     Active Substance: ATORVASTATIN CALCIUM
     Dates: end: 20150115
  14. CINAL [Concomitant]
     Active Substance: ASCORBIC ACID\CALCIUM PANTOTHENATE
     Dates: start: 1985, end: 20150426
  15. GASMOTIN [Concomitant]
     Active Substance: MOSAPRIDE CITRATE
     Dates: end: 20150426
  16. ZETIA [Concomitant]
     Active Substance: EZETIMIBE
     Dates: end: 20150426
  17. CEROCRAL [Concomitant]
     Active Substance: IFENPRODIL
     Dates: end: 20150426
  18. BUP-4 [Concomitant]
     Active Substance: PROPIVERINE
     Dates: start: 201402, end: 20150426
  19. CRESTOR [Concomitant]
     Active Substance: ROSUVASTATIN CALCIUM
     Dates: start: 20150116, end: 20150504

REACTIONS (6)
  - Haematemesis [Recovering/Resolving]
  - Abdominal discomfort [Recovering/Resolving]
  - Sudden hearing loss [Recovering/Resolving]
  - Vomiting [Recovering/Resolving]
  - Nausea [Recovering/Resolving]
  - Gastric ulcer haemorrhage [Recovering/Resolving]
